FAERS Safety Report 12091954 (Version 1)
Quarter: 2016Q1

REPORT INFORMATION
  Report Type: Report from Study
  Country: NL (occurrence: NL)
  Receive Date: 20160219
  Receipt Date: 20160219
  Transmission Date: 20160526
  Serious: Yes (Death, Other)
  Sender: FDA-Public Use
  Company Number: NL-AMGEN-NLDSL2015141560

PATIENT
  Age: 64 Year
  Sex: Female

DRUGS (1)
  1. XGEVA [Suspect]
     Active Substance: DENOSUMAB
     Indication: BREAST CANCER
     Dosage: UNK, Q4WK
     Route: 058
     Dates: start: 20141027, end: 20160203

REACTIONS (1)
  - Death [Fatal]

NARRATIVE: CASE EVENT DATE: 20160216
